FAERS Safety Report 17938381 (Version 10)
Quarter: 2020Q3

REPORT INFORMATION
  Report Type: Report from Study
  Country: None (occurrence: ES)
  Receive Date: 20200625
  Receipt Date: 20200907
  Transmission Date: 20201103
  Serious: Yes (Hospitalization, Other)
  Sender: FDA-Public Use
  Company Number: ES-ABBVIE-20K-144-3456326-00

PATIENT
  Age: 81 Year
  Sex: Male
  Weight: 80 kg

DRUGS (2)
  1. DUODOPA [Suspect]
     Active Substance: CARBIDOPA\LEVODOPA
     Indication: PARKINSON^S DISEASE
     Route: 050
     Dates: start: 20180509
  2. DUODOPA [Suspect]
     Active Substance: CARBIDOPA\LEVODOPA

REACTIONS (6)
  - Postoperative wound infection [Recovering/Resolving]
  - Pyrexia [Recovered/Resolved]
  - Procedural pain [Recovered/Resolved]
  - Spinal compression fracture [Recovered/Resolved]
  - Restless legs syndrome [Recovering/Resolving]
  - Postoperative wound complication [Recovering/Resolving]

NARRATIVE: CASE EVENT DATE: 20200615
